FAERS Safety Report 7618962-8 (Version None)
Quarter: 2011Q3

REPORT INFORMATION
  Report Type: 
  Country: None (occurrence: None)
  Receive Date: 20110718
  Receipt Date: 20110712
  Transmission Date: 20111222
  Serious: Yes (Hospitalization, Other)
  Sender: FDA-Public Use
  Company Number: SK-PFIZER INC-2011127398

PATIENT
  Age: 57 Year
  Sex: Male

DRUGS (4)
  1. RANITAL [Concomitant]
     Dosage: UNK
  2. CREON [Concomitant]
     Dosage: UNK
  3. TICLOPIDINE [Concomitant]
     Dosage: UNK
  4. SUTENT [Suspect]
     Indication: RENAL CELL CARCINOMA
     Dosage: 50 MG, 1X/DAY
     Route: 048
     Dates: start: 20081024

REACTIONS (7)
  - NEUTROPENIA [None]
  - THROMBOCYTOPENIA [None]
  - PNEUMONIA [None]
  - LEUKOPENIA [None]
  - ANAEMIA [None]
  - HYPERCREATINAEMIA [None]
  - THROMBOSIS [None]
